FAERS Safety Report 24015319 (Version 3)
Quarter: 2024Q4

REPORT INFORMATION
  Report Type: Report from Study
  Country: AU (occurrence: AU)
  Receive Date: 20240626
  Receipt Date: 20241220
  Transmission Date: 20250114
  Serious: Yes (Disabling)
  Sender: ROCHE
  Company Number: AU-ROCHE-3568263

PATIENT
  Age: 45 Year
  Sex: Female

DRUGS (3)
  1. OCREVUS [Suspect]
     Active Substance: OCRELIZUMAB
     Indication: Multiple sclerosis
     Route: 042
     Dates: start: 20240613
  2. OCREVUS [Suspect]
     Active Substance: OCRELIZUMAB
     Route: 042
     Dates: start: 20240613
  3. OCREVUS [Suspect]
     Active Substance: OCRELIZUMAB
     Route: 042
     Dates: start: 2023

REACTIONS (9)
  - Oropharyngeal pain [Unknown]
  - Cough [Unknown]
  - COVID-19 [Recovered/Resolved]
  - Memory impairment [Unknown]
  - Feeling jittery [Unknown]
  - Coccydynia [Unknown]
  - Memory impairment [Recovering/Resolving]
  - Tremor [Recovering/Resolving]
  - Migraine [Unknown]

NARRATIVE: CASE EVENT DATE: 20240613
